FAERS Safety Report 16346684 (Version 5)
Quarter: 2019Q2

REPORT INFORMATION
  Report Type: Report from Study
  Country: None (occurrence: CH)
  Receive Date: 20190523
  Receipt Date: 20190606
  Transmission Date: 20190711
  Serious: Yes (Death, Hospitalization, Other)
  Sender: FDA-Public Use
  Company Number: CH-ABBVIE-19S-151-2789978-00

PATIENT
  Sex: Female

DRUGS (3)
  1. DUODOPA [Suspect]
     Active Substance: CARBIDOPA\LEVODOPA
     Dosage: MD:7.3 ML, CRD: 2.6 ML/H, ED:1 ML?16 H THERAPY
     Route: 050
     Dates: start: 20190429
  2. DUODOPA [Suspect]
     Active Substance: CARBIDOPA\LEVODOPA
     Indication: PARKINSON^S DISEASE
     Route: 050
     Dates: start: 20160126, end: 20181010
  3. DUODOPA [Suspect]
     Active Substance: CARBIDOPA\LEVODOPA
     Dosage: MD:7.5 ML, CRD:2.6 ML/H, ED:1 ML?16 H THERAPY
     Route: 050
     Dates: start: 20181010, end: 20190429

REACTIONS (4)
  - Fluid intake reduced [Fatal]
  - Impaired quality of life [Fatal]
  - Fall [Recovered/Resolved]
  - Suicidal ideation [Fatal]

NARRATIVE: CASE EVENT DATE: 2019
